FAERS Safety Report 12192205 (Version 3)
Quarter: 2016Q4

REPORT INFORMATION
  Report Type: Report from Study
  Country: US (occurrence: US)
  Receive Date: 20160318
  Receipt Date: 20161025
  Transmission Date: 20170207
  Serious: Yes (Hospitalization, Other)
  Sender: FDA-Public Use
  Company Number: US-AMGEN-USASL2016032991

PATIENT
  Age: 54 Year
  Sex: Female
  Weight: 85.71 kg

DRUGS (1)
  1. ENBREL [Suspect]
     Active Substance: ETANERCEPT
     Indication: RHEUMATOID ARTHRITIS
     Dosage: 50 MG, QWK
     Route: 058
     Dates: start: 2008

REACTIONS (7)
  - Condition aggravated [Unknown]
  - Hysterectomy [Unknown]
  - Urinary incontinence [Unknown]
  - Arthralgia [Unknown]
  - Pain [Unknown]
  - Mobility decreased [Unknown]
  - Colon cancer [Unknown]

NARRATIVE: CASE EVENT DATE: 2009
